FAERS Safety Report 5566570-5 (Version None)
Quarter: 2007Q4

REPORT INFORMATION
  Report Type: 
  Country: None (occurrence: None)
  Receive Date: 20071214
  Receipt Date: 20071205
  Transmission Date: 20080405
  Serious: No
  Sender: FDA-Public Use
  Company Number: MPS1-10786

PATIENT
  Age: 3 Year
  Weight: 20.4119 kg

DRUGS (3)
  1. ALDURAZYME [Suspect]
     Indication: MUCOPOLYSACCHARIDOSIS I
     Dosage: 12 MG QWK IV
     Route: 042
     Dates: start: 20071115, end: 20071121
  2. BENADRYL [Concomitant]
  3. TYLENOL [Concomitant]

REACTIONS (1)
  - URTICARIA [None]
